FAERS Safety Report 24566779 (Version 1)
Quarter: 2024Q4

REPORT INFORMATION
  Report Type: Spontaneous
  Country: ES (occurrence: ES)
  Receive Date: 20241030
  Receipt Date: 20241030
  Transmission Date: 20250114
  Serious: Yes (Other)
  Sender: OTSUKA
  Company Number: ES-SUN PHARMACEUTICAL INDUSTRIES LTD-2024RR-472962

PATIENT
  Age: 56 Year
  Sex: Male

DRUGS (2)
  1. ARIPIPRAZOLE [Suspect]
     Active Substance: ARIPIPRAZOLE
     Indication: Depression
     Dosage: 60 MG, QD
     Route: 048
  2. ARIPIPRAZOLE [Suspect]
     Active Substance: ARIPIPRAZOLE
     Indication: Depression
     Dosage: 400 MG EVERY 28 DAYS
     Route: 030

REACTIONS (3)
  - Psychiatric decompensation [Unknown]
  - Treatment noncompliance [Unknown]
  - Product use in unapproved indication [Unknown]
